FAERS Safety Report 16524405 (Version 2)
Quarter: 2020Q3

REPORT INFORMATION
  Report Type: Spontaneous
  Country: AU (occurrence: AU)
  Receive Date: 20190702
  Receipt Date: 20200729
  Transmission Date: 20201102
  Serious: Yes (Death, Other)
  Sender: FDA-Public Use
  Company Number: AU-GILEAD-2019-0414212

PATIENT
  Age: 6 Decade
  Sex: Male

DRUGS (1)
  1. YESCARTA [Suspect]
     Active Substance: AXICABTAGENE CILOLEUCEL
     Indication: PRODUCT USED FOR UNKNOWN INDICATION
     Dosage: UNK
     Route: 065
     Dates: start: 201904, end: 201904

REACTIONS (5)
  - Cytokine release syndrome [Recovered/Resolved]
  - Neurotoxicity [Recovered/Resolved]
  - Death [Fatal]
  - Immune effector cell-associated neurotoxicity syndrome [Not Recovered/Not Resolved]
  - Neurotoxicity [Not Recovered/Not Resolved]
